FAERS Safety Report 4409971-0 (Version None)
Quarter: 2004Q3

REPORT INFORMATION
  Report Type: 
  Country: None (occurrence: None)
  Receive Date: 20040728
  Receipt Date: 20040728
  Transmission Date: 20050211
  Serious: Yes (Hospitalization, Other)
  Sender: FDA-Public Use
  Company Number: None

PATIENT

DRUGS (2)
  1. ACTOS [Suspect]
     Dosage: TABLET 30 MG
  2. ACTONEL [Suspect]
     Dosage: TABLET 30  MG

REACTIONS (1)
  - MEDICATION ERROR [None]
